FAERS Safety Report 10479200 (Version 1)
Quarter: 2014Q3

REPORT INFORMATION
  Report Type: Report from Study
  Country: CN (occurrence: CN)
  Receive Date: 20140926
  Receipt Date: 20140926
  Transmission Date: 20150326
  Serious: Yes (Other)
  Sender: FDA-Public Use
  Company Number: CN-BRISTOL-MYERS SQUIBB COMPANY-21440102

PATIENT
  Age: 61 Year
  Sex: Female
  Weight: 65 kg

DRUGS (4)
  1. METFORMIN HCL [Suspect]
     Active Substance: METFORMIN HYDROCHLORIDE
     Indication: DIABETES MELLITUS
     Dosage: 1DF: 0.25 UNIT NOS?0.85 NOS BID FROM 2012 TO 2014 ?INCREASED TO 1.275 BID FROM 2014
     Route: 048
     Dates: start: 2006
  2. GLICLAZIDE [Suspect]
     Active Substance: GLICLAZIDE
     Indication: DIABETES MELLITUS
     Route: 048
     Dates: start: 2006, end: 2012
  3. INSULIN GLARGINE [Suspect]
     Active Substance: INSULIN GLARGINE
     Indication: DIABETES MELLITUS
     Dosage: 1 DOSAGE FORM = 18 UNITS
     Route: 058
     Dates: start: 2012, end: 2014
  4. HUMULIN R [Suspect]
     Active Substance: INSULIN HUMAN
     Indication: DIABETES MELLITUS
     Dosage: 1DF: 18-16-16 UNIT
     Route: 058
     Dates: start: 2012, end: 2014

REACTIONS (5)
  - Hyperuricaemia [Unknown]
  - Hepatic steatosis [Unknown]
  - Metabolic syndrome [Unknown]
  - Coronary artery disease [Unknown]
  - Macular degeneration [Unknown]

NARRATIVE: CASE EVENT DATE: 2014
